FAERS Safety Report 9118000 (Version 2)
Quarter: 2013Q2

REPORT INFORMATION
  Report Type: Report from Study
  Country: CL (occurrence: CL)
  Receive Date: 20130226
  Receipt Date: 20130430
  Transmission Date: 20140414
  Serious: Yes (Other)
  Sender: FDA-Public Use
  Company Number: PHHY2013CL015152

PATIENT
  Age: 66 Year
  Sex: Male
  Weight: 72 kg

DRUGS (14)
  1. ACLASTA [Suspect]
     Indication: PLASMA CELL MYELOMA
     Dosage: 5 MG/100 ML YEARLY
     Route: 042
     Dates: start: 20120723
  2. ACLASTA [Suspect]
     Indication: OFF LABEL USE
  3. CHEMOTHERAPEUTICS [Concomitant]
  4. THALIDOMIDE [Concomitant]
     Indication: PLASMA CELL MYELOMA
     Dosage: 100 MG, QD
     Route: 048
     Dates: start: 20120913
  5. CYCLOPHOSPHAMIDE [Concomitant]
     Indication: PLASMA CELL MYELOMA
     Dosage: 11 UNITS ON SUNDAY
     Route: 048
     Dates: start: 20120913
  6. CLONAZEPAM [Concomitant]
     Indication: RESTLESSNESS
     Dosage: 20 MG, UNK (1/4)
     Route: 048
  7. ALOPURINOL [Concomitant]
     Dosage: 100 MG, QD
     Route: 048
     Dates: start: 20120913
  8. ASPIRIN [Concomitant]
     Indication: BLOOD PRESSURE INCREASED
     Dosage: UKN, QD
     Route: 048
     Dates: start: 20120913
  9. PAMIDRONATE [Concomitant]
     Indication: BONE DISORDER
     Dosage: 90 MG, MONTHLY
     Route: 042
     Dates: start: 201212
  10. OMEPRAZOLE [Concomitant]
     Indication: GASTRIC DISORDER
     Dosage: UKN, QD
     Route: 048
     Dates: start: 20120913
  11. ELCAL [Concomitant]
     Indication: PLASMA CELL MYELOMA
     Dosage: 500 MG, BID
     Route: 048
     Dates: start: 201206
  12. LACTULOSE [Concomitant]
     Indication: CONSTIPATION
     Dosage: 1 SPOON
     Route: 048
     Dates: start: 201211
  13. PARACETAMOL [Concomitant]
     Indication: PAIN
     Dosage: UNK
     Route: 048
     Dates: start: 201211
  14. TRAMADOL [Concomitant]
     Indication: PAIN
     Dosage: 10 DROPS AT NIGHT
     Route: 048
     Dates: start: 201211

REACTIONS (12)
  - Neoplasm malignant [Unknown]
  - Spinal disorder [Not Recovered/Not Resolved]
  - Discomfort [Recovering/Resolving]
  - Back pain [Recovering/Resolving]
  - Gingival infection [Recovering/Resolving]
  - Breath odour [Recovering/Resolving]
  - Depression [Not Recovered/Not Resolved]
  - Abnormal behaviour [Recovered/Resolved]
  - Memory impairment [Not Recovered/Not Resolved]
  - Asthenia [Recovering/Resolving]
  - Headache [Recovered/Resolved]
  - Drug ineffective [Unknown]
